FAERS Safety Report 16238615 (Version 1)
Quarter: 2019Q2

REPORT INFORMATION
  Report Type: Spontaneous
  Country: US (occurrence: US)
  Receive Date: 20190425
  Receipt Date: 20190425
  Transmission Date: 20190711
  Serious: Yes (Other)
  Sender: FDA-Public Use
  Company Number: US-BRACCO-2019US01961

PATIENT
  Sex: Male

DRUGS (1)
  1. MULTIHANCE [Suspect]
     Active Substance: GADOBENATE DIMEGLUMINE
     Indication: NUCLEAR MAGNETIC RESONANCE IMAGING
     Dosage: UNK, SINGLE
     Route: 042

REACTIONS (16)
  - Fatigue [Unknown]
  - Pain [Unknown]
  - Muscle spasms [Unknown]
  - Gadolinium deposition disease [Unknown]
  - Burning sensation [Unknown]
  - Rash [Unknown]
  - Arthralgia [Unknown]
  - Inflammation [Unknown]
  - Hypoaesthesia [Unknown]
  - Asthenia [Unknown]
  - Mass [Unknown]
  - Anxiety [Unknown]
  - Confusional state [Unknown]
  - Paraesthesia [Unknown]
  - Injury [Unknown]
  - Mental impairment [Unknown]
